FAERS Safety Report 12530591 (Version 1)
Quarter: 2016Q3

REPORT INFORMATION
  Report Type: Spontaneous
  Country: US (occurrence: None)
  Receive Date: 20160705
  Receipt Date: 20160705
  Transmission Date: 20161109
  Serious: No
  Sender: FDA-Public Use
  Company Number: None

PATIENT
  Age: 62 Year
  Sex: Female
  Weight: 71.67 kg

DRUGS (6)
  1. RECLAST [Suspect]
     Active Substance: ZOLEDRONIC ACID
     Indication: OSTEOPOROSIS
     Route: 042
  2. GENERAL VITAMIN [Concomitant]
  3. VITAMIN B [Concomitant]
     Active Substance: VITAMIN B
  4. LISINOPRIL. [Concomitant]
     Active Substance: LISINOPRIL
  5. CALCIUM-MAGNESIUM [Concomitant]
     Active Substance: CALCIUM\MAGNESIUM
  6. ZINC [Concomitant]
     Active Substance: ZINC\ZINC CHLORIDE

REACTIONS (4)
  - Blood pressure increased [None]
  - Myalgia [None]
  - Arthralgia [None]
  - Sleep disorder [None]
